FAERS Safety Report 6137663-9 (Version None)
Quarter: 2009Q1

REPORT INFORMATION
  Report Type: 
  Country: None (occurrence: None)
  Receive Date: 20090331
  Receipt Date: 20090312
  Transmission Date: 20090719
  Serious: Yes (Other)
  Sender: FDA-Public Use
  Company Number: DE-BAYER-200915708GPV

PATIENT
  Age: 15 Year
  Sex: Female

DRUGS (1)
  1. CIPROFLOXACIN [Suspect]
     Indication: VIRAL INFECTION
     Route: 048

REACTIONS (3)
  - CONFUSIONAL STATE [None]
  - FACIAL SPASM [None]
  - RESTLESSNESS [None]
